FAERS Safety Report 17917600 (Version 1)
Quarter: 2020Q2

REPORT INFORMATION
  Report Type: Spontaneous
  Country: US (occurrence: US)
  Receive Date: 20200619
  Receipt Date: 20200619
  Transmission Date: 20200714
  Serious: Yes (Hospitalization)
  Sender: FDA-Public Use
  Company Number: US-AMNEAL PHARMACEUTICALS-2020-AMRX-01739

PATIENT
  Age: 16 Year
  Sex: Male
  Weight: 56.7 kg

DRUGS (4)
  1. ADRENACLICK [Suspect]
     Active Substance: EPINEPHRINE
     Indication: ANAPHYLACTIC REACTION
     Dosage: 0.3 MILLIGRAM, 1:1000
     Route: 042
  2. ADRENACLICK [Suspect]
     Active Substance: EPINEPHRINE
     Dosage: 0.1 MICROGRAM/KILOGRAM, EVERY HOUR
     Route: 065
  3. BENADRYL [Concomitant]
     Active Substance: DIPHENHYDRAMINE HYDROCHLORIDE
     Indication: ANAPHYLACTIC REACTION
     Dosage: 50 MILLIGRAM
     Route: 042
  4. ADRENACLICK [Suspect]
     Active Substance: EPINEPHRINE
     Dosage: 0.1 MICROGRAM/KILOGRAM, EVERY MIN
     Route: 041

REACTIONS (3)
  - Myocardial ischaemia [Recovered/Resolved]
  - Incorrect route of product administration [Unknown]
  - Cardiogenic shock [Recovered/Resolved]
